FAERS Safety Report 10652453 (Version 1)
Quarter: 2014Q4

REPORT INFORMATION
  Report Type: Spontaneous
  Country: US (occurrence: None)
  Receive Date: 20141211
  Receipt Date: 20141211
  Transmission Date: 20150529
  Serious: Yes (Other)
  Sender: FDA-Public Use
  Company Number: US-H14001-14-01755

PATIENT
  Age: 59 Year
  Sex: Female

DRUGS (1)
  1. AMLODIPINE [Suspect]
     Active Substance: AMLODIPINE BESYLATE
     Indication: HYPERTENSION

REACTIONS (10)
  - Skin exfoliation [None]
  - Drug hypersensitivity [None]
  - Burning sensation [None]
  - Peripheral swelling [None]
  - Pruritus [None]
  - Erythema [None]
  - Rash [None]
  - Eczema [None]
  - Pain [None]
  - Serum sickness [None]
